FAERS Safety Report 4396617-3 (Version None)
Quarter: 2004Q3

REPORT INFORMATION
  Report Type: 
  Country: None (occurrence: None)
  Receive Date: 20040713
  Receipt Date: 20040713
  Transmission Date: 20050211
  Serious: Yes (Other)
  Sender: FDA-Public Use
  Company Number: None

PATIENT
  Sex: Female
  Weight: 70.3075 kg

DRUGS (5)
  1. ACTONEL [Suspect]
     Indication: OSTEOPENIA
     Dosage: 35 MG PO ONCE WEEKLY
     Route: 048
  2. TIMOLOL MALEATE [Concomitant]
  3. FLORINEF [Concomitant]
  4. CORTEF [Concomitant]
  5. EFFEXOR [Concomitant]

REACTIONS (5)
  - BODY TEMPERATURE INCREASED [None]
  - BONE PAIN [None]
  - CHILLS [None]
  - HEADACHE [None]
  - NAUSEA [None]
